FAERS Safety Report 5843537-0 (Version None)
Quarter: 2008Q3

REPORT INFORMATION
  Report Type: 
  Country: None (occurrence: None)
  Receive Date: 20080813
  Receipt Date: 20080808
  Transmission Date: 20090109
  Serious: Yes (Other)
  Sender: FDA-Public Use
  Company Number: JP-AVENTIS-200811856JP

PATIENT
  Age: 86 Year
  Sex: Female

DRUGS (5)
  1. LASIX [Suspect]
     Indication: HYPERTENSION
     Route: 048
     Dates: end: 20080528
  2. ARICEPT [Concomitant]
     Indication: DEMENTIA
     Route: 048
  3. ALDACTONE [Concomitant]
     Indication: HYPERTENSION
     Route: 048
  4. SELBEX [Concomitant]
     Indication: GASTRITIS PROPHYLAXIS
     Route: 048
  5. VASOLATOR [Concomitant]
     Indication: ANGINA PECTORIS
     Dosage: DOSE: 1 SHEET/DAY
     Route: 003

REACTIONS (3)
  - BLISTER [None]
  - PEMPHIGOID [None]
  - RASH ERYTHEMATOUS [None]
